FAERS Safety Report 15826474 (Version 2)
Quarter: 2019Q1

REPORT INFORMATION
  Report Type: Spontaneous
  Country: PL (occurrence: PL)
  Receive Date: 20190115
  Receipt Date: 20190125
  Transmission Date: 20190417
  Serious: Yes (Death, Hospitalization, Other)
  Sender: FDA-Public Use
  Company Number: PHHY2019PL003294

PATIENT

DRUGS (1)
  1. INTERFERON BETA-1B [Suspect]
     Active Substance: INTERFERON BETA-1B
     Indication: FOETAL EXPOSURE DURING PREGNANCY
     Dosage: UNK (PARENT DOSE: 1 DF (?G/L), QOD)
     Route: 064

REACTIONS (3)
  - Foetal exposure timing unspecified [Unknown]
  - Foetal cardiac disorder [Unknown]
  - Foetal death [Fatal]

NARRATIVE: CASE EVENT DATE: 20190104
